FAERS Safety Report 8511729-8 (Version None)
Quarter: 2012Q3

REPORT INFORMATION
  Report Type: 
  Country: None (occurrence: None)
  Receive Date: 20120716
  Receipt Date: 20120704
  Transmission Date: 20120928
  Serious: Yes (Hospitalization)
  Sender: FDA-Public Use
  Company Number: FR-BAYER-2011-005422

PATIENT
  Age: 69 Year
  Sex: Male
  Weight: 85 kg

DRUGS (34)
  1. ACTISKENAN [Concomitant]
     Indication: PAIN
     Dosage: 30 MG, QID
     Route: 048
     Dates: start: 20110107
  2. POLYETHYLENE GLYCOL [Concomitant]
     Indication: CONSTIPATION
     Dosage: UNK
     Route: 048
     Dates: start: 20110107
  3. SPASFON [Concomitant]
     Dosage: 6 CP
     Dates: start: 20100204
  4. ZOLPIDEM TARTRATE [Concomitant]
     Dosage: DAILY DOSE 10 MG
     Route: 048
  5. TRIMEBUTINE [Concomitant]
     Dosage: 600 MG, QD
     Dates: start: 20100308
  6. LOVENOX [Concomitant]
     Dosage: DAILY DOSE; 0.4ML
     Route: 058
     Dates: start: 20110726
  7. MORPHINE SULFATE [Concomitant]
     Dosage: DAILY DOSE 200 MG
     Dates: start: 20101104
  8. SORAFENIB [Suspect]
     Dosage: 400 MG, QD
     Route: 048
     Dates: start: 20101104, end: 20101215
  9. POTASSIUM CHLORIDE [Concomitant]
     Dosage: 2000 MG, QD
     Dates: end: 20100308
  10. ASPIRIN [Concomitant]
     Dosage: 75 MG, QD
  11. LANSOPRAZOLE [Concomitant]
     Dosage: 15 MG, QD
     Dates: end: 20100307
  12. ZOLPIDEM [Concomitant]
     Dosage: DAILY DOSE: 10MG
     Route: 048
  13. BIODALGIC [Concomitant]
     Dosage: 50 MG, QD
     Dates: end: 20100204
  14. SINGULAIR [Concomitant]
     Dosage: UNK
     Route: 048
     Dates: start: 20110107
  15. TRANSIPEG [MACROGOL 3350,KCL,NA BICARB,NACL,NA+ SULF ANHYDR] [Concomitant]
     Dosage: 3 CP
     Dates: start: 20100308
  16. NEXIUM [Concomitant]
     Dosage: DAILY DOSE 40 MG
     Route: 048
     Dates: start: 20110107
  17. SORAFENIB [Suspect]
     Dosage: 200 MG, QD
     Route: 048
     Dates: start: 20101101, end: 20101103
  18. STABLON [Concomitant]
     Dosage: DAILY DOSE: 12.5MG
     Route: 048
     Dates: start: 20100204
  19. ATORVASTATIN [Concomitant]
     Dosage: DAILY DOSE 10 MG
     Route: 048
     Dates: start: 20110107
  20. OLICLINOMEL [Concomitant]
     Indication: PARENTERAL NUTRITION
     Dosage: UNK
  21. SORAFENIB [Suspect]
     Dosage: 400 MG, QD
     Route: 048
     Dates: start: 20101225, end: 20110716
  22. TPN [Concomitant]
     Dosage: UNK
     Dates: start: 20110726
  23. ESCITALOPRAM [Concomitant]
     Dosage: DAILY DOSE: 10MG
     Route: 048
     Dates: start: 20110726
  24. SORAFENIB [Suspect]
     Dosage: 400 MG, QD
     Route: 048
     Dates: start: 20100308, end: 20101023
  25. ALDACTONE [Concomitant]
     Dosage: 75 MG, QD
     Dates: end: 20110531
  26. CHLOROQUINE PHOSPHATE [Concomitant]
     Dosage: 120 MG, QD
     Dates: end: 20100308
  27. PRAVASTATIN [Concomitant]
     Dosage: 20 MG, QD
  28. SORAFENIB [Suspect]
     Indication: HEPATIC NEOPLASM MALIGNANT
     Dosage: 800 MG, QD
     Route: 048
     Dates: start: 20100120, end: 20100307
  29. SINGULAIR [Concomitant]
     Dosage: DAILY DOSE: 10 MG
     Dates: start: 20110107
  30. MICROLAX [GLYCEROL,SODIUM CITRATE ACID,SODIUM LAURYL SULFATE,SORBI [Concomitant]
     Dosage: UNK
     Dates: start: 20100701
  31. POLYETHYLENE GLYCOL [Concomitant]
     Indication: DIARRHOEA
     Dosage: DAILY DOSE: 2 BAG
     Route: 048
     Dates: start: 20110531
  32. TARKA [Concomitant]
     Dosage: DAILY DOSE 180 MG
     Route: 048
     Dates: start: 20100308
  33. BETAMETHASONE [Concomitant]
     Indication: DERMATOSIS
     Dosage: UNK
     Route: 003
     Dates: start: 20110726
  34. FUROSEMIDE [Concomitant]
     Dosage: DAILY DOSE: 40MG
     Route: 048
     Dates: start: 20110531

REACTIONS (5)
  - VARICES OESOPHAGEAL [None]
  - IRON DEFICIENCY ANAEMIA [None]
  - GENERAL PHYSICAL HEALTH DETERIORATION [None]
  - FUNCTIONAL GASTROINTESTINAL DISORDER [None]
  - PAIN [None]
